FAERS Safety Report 11106437 (Version 1)
Quarter: 2015Q2

REPORT INFORMATION
  Report Type: Spontaneous
  Country: DK (occurrence: None)
  Receive Date: 20150508
  Receipt Date: 20150508
  Transmission Date: 20150821
  Serious: Yes (Death, Hospitalization, Other)
  Sender: FDA-Public Use
  Company Number: 2015COR00086

PATIENT
  Age: 22 Year
  Sex: Male

DRUGS (2)
  1. AMPHETAMINE (AMPHETAMINE) [Suspect]
     Active Substance: AMPHETAMINE
     Dosage: INSUFFLATION
  2. 25C-NBOME (25C-NBOME) CAPSULE [Suspect]
     Active Substance: 4-CHLORO-2,5-DIMETHOXY-N-(2-METHOXYBENZYL)PHENETHYLAMINE
     Dosage: INSUFFLATION

REACTIONS (20)
  - Multi-organ failure [None]
  - Respiratory acidosis [None]
  - Contusion [None]
  - Serotonin syndrome [None]
  - Disseminated intravascular coagulation [None]
  - Drug interaction [None]
  - Loss of consciousness [None]
  - Skin abrasion [None]
  - Hyperkalaemia [None]
  - Anuria [None]
  - Seizure [None]
  - Drug ineffective [None]
  - Toxicity to various agents [None]
  - Acid-base balance disorder mixed [None]
  - Rhabdomyolysis [None]
  - Ventricular tachycardia [None]
  - Drug abuse [None]
  - Atrial fibrillation [None]
  - Metabolic acidosis [None]
  - Electrocardiogram ST segment depression [None]

NARRATIVE: CASE EVENT DATE: 20140621
